FAERS Safety Report 6587969-4 (Version None)
Quarter: 2010Q1

REPORT INFORMATION
  Report Type: 
  Country: None (occurrence: None)
  Receive Date: 20100217
  Receipt Date: 20100217
  Transmission Date: 20100710
  Serious: Yes (Hospitalization, Disabling)
  Sender: FDA-Public Use
  Company Number: None

PATIENT
  Age: 24 Year
  Sex: Female
  Weight: 84.369 kg

DRUGS (1)
  1. GEODON [Suspect]
     Dates: start: 20100126, end: 20100210

REACTIONS (2)
  - TARDIVE DYSKINESIA [None]
  - VISUAL IMPAIRMENT [None]
